FAERS Safety Report 13335223 (Version 1)
Quarter: 2017Q1

REPORT INFORMATION
  Report Type: Spontaneous
  Country: US (occurrence: US)
  Receive Date: 20170314
  Receipt Date: 20170314
  Transmission Date: 20170428
  Serious: No
  Sender: FDA-Public Use
  Company Number: US-GALDERMA-US16006410

PATIENT
  Age: 56 Year
  Sex: Female

DRUGS (4)
  1. CYCLOBENZAPRINE [Concomitant]
     Active Substance: CYCLOBENZAPRINE
     Indication: PAIN
  2. VICODIN [Concomitant]
     Active Substance: ACETAMINOPHEN\HYDROCODONE BITARTRATE
     Indication: PAIN
  3. TRI-LUMA [Suspect]
     Active Substance: FLUOCINOLONE ACETONIDE\HYDROQUINONE\TRETINOIN
     Indication: PIGMENTATION DISORDER
     Route: 061
     Dates: start: 20160721, end: 20160905
  4. ADVIL MIGRAINE [Concomitant]
     Active Substance: IBUPROFEN

REACTIONS (7)
  - Skin irritation [Recovered/Resolved]
  - Condition aggravated [Recovered/Resolved]
  - Blister [Recovered/Resolved]
  - Drug ineffective [Recovered/Resolved]
  - Skin burning sensation [Recovered/Resolved]
  - Skin hyperpigmentation [Recovered/Resolved]
  - Product use issue [Recovered/Resolved]

NARRATIVE: CASE EVENT DATE: 20160721
